FAERS Safety Report 21995133 (Version 2)
Quarter: 2023Q1

REPORT INFORMATION
  Report Type: Report from Study
  Country: US (occurrence: US)
  Receive Date: 20230215
  Receipt Date: 20230313
  Transmission Date: 20230417
  Serious: No
  Sender: FDA-Public Use
  Company Number: US-002147023-NVSC2023US034625

PATIENT
  Sex: Female

DRUGS (2)
  1. PIQRAY [Suspect]
     Active Substance: ALPELISIB
     Indication: Product used for unknown indication
     Dosage: UNK
     Route: 048
     Dates: start: 20230209
  2. PIQRAY [Suspect]
     Active Substance: ALPELISIB
     Dosage: 1 DOSAGE FORM, QD
     Route: 065

REACTIONS (7)
  - Head discomfort [Unknown]
  - Pollakiuria [Unknown]
  - Pain [Unknown]
  - Dry mouth [Unknown]
  - Headache [Unknown]
  - Rash [Unknown]
  - Blood glucose increased [Unknown]
